FAERS Safety Report 5434865-1 (Version None)
Quarter: 2007Q3

REPORT INFORMATION
  Report Type: 
  Country: None (occurrence: None)
  Receive Date: 20070831
  Receipt Date: 20070813
  Transmission Date: 20080115
  Serious: No
  Sender: FDA-Public Use
  Company Number: A0668312A

PATIENT
  Age: 52 Year
  Sex: Female

DRUGS (3)
  1. ALLI [Suspect]
     Route: 048
     Dates: start: 20070706
  2. DIURETICS [Concomitant]
  3. TUMS [Concomitant]

REACTIONS (2)
  - ABDOMINAL DISTENSION [None]
  - PHARMACEUTICAL PRODUCT COMPLAINT [None]
